FAERS Safety Report 15531906 (Version 1)
Quarter: 2018Q4

REPORT INFORMATION
  Report Type: Spontaneous
  Country: US (occurrence: US)
  Receive Date: 20181019
  Receipt Date: 20181019
  Transmission Date: 20190205
  Serious: No
  Sender: FDA-Public Use
  Company Number: PHEH2018US043709

PATIENT
  Age: 60 Year
  Sex: Female

DRUGS (1)
  1. CLONAZEPAM TABLETS, USP [Suspect]
     Active Substance: CLONAZEPAM
     Indication: PRODUCT USED FOR UNKNOWN INDICATION
     Dosage: UNK
     Route: 065

REACTIONS (9)
  - Abdominal pain upper [Unknown]
  - Disturbance in attention [Unknown]
  - Anxiety [Unknown]
  - Tremor [Unknown]
  - Asthenia [Unknown]
  - Headache [Unknown]
  - Influenza like illness [Unknown]
  - Insomnia [Unknown]
  - Fatigue [Unknown]
